FAERS Safety Report 14245353 (Version 8)
Quarter: 2018Q4

REPORT INFORMATION
  Report Type: Report from Study
  Country: None (occurrence: US)
  Receive Date: 20171202
  Receipt Date: 20181126
  Transmission Date: 20190204
  Serious: Yes (Hospitalization, Other)
  Sender: FDA-Public Use
  Company Number: US-ABBVIE-17K-163-2137746-00

PATIENT
  Sex: Female

DRUGS (4)
  1. HUMIRA [Suspect]
     Active Substance: ADALIMUMAB
     Indication: RHEUMATOID ARTHRITIS
     Route: 058
     Dates: start: 2015, end: 201609
  2. HUMIRA [Suspect]
     Active Substance: ADALIMUMAB
     Route: 058
     Dates: start: 20180920
  3. HUMIRA [Suspect]
     Active Substance: ADALIMUMAB
     Indication: CROHN^S DISEASE
     Route: 058
     Dates: start: 20170914, end: 201804
  4. HUMIRA [Suspect]
     Active Substance: ADALIMUMAB
     Route: 058
     Dates: start: 20180423, end: 2018

REACTIONS (20)
  - Crohn^s disease [Unknown]
  - Musculoskeletal pain [Unknown]
  - Arthralgia [Recovering/Resolving]
  - Neck pain [Not Recovered/Not Resolved]
  - Loss of personal independence in daily activities [Recovering/Resolving]
  - Post procedural infection [Unknown]
  - Pain in extremity [Unknown]
  - Peripheral swelling [Unknown]
  - Swelling [Unknown]
  - Osteoarthritis [Recovered/Resolved]
  - Gait disturbance [Recovering/Resolving]
  - Sensitivity to weather change [Not Recovered/Not Resolved]
  - Rheumatoid arthritis [Unknown]
  - Injection site pain [Unknown]
  - Headache [Not Recovered/Not Resolved]
  - Knee arthroplasty [Unknown]
  - Joint stiffness [Recovering/Resolving]
  - Dyspepsia [Unknown]
  - Wound infection staphylococcal [Unknown]
  - Discomfort [Unknown]

NARRATIVE: CASE EVENT DATE: 2016
